FAERS Safety Report 4981462-8 (Version None)
Quarter: 2006Q2

REPORT INFORMATION
  Report Type: 
  Country: None (occurrence: None)
  Receive Date: 20060424
  Receipt Date: 20050829
  Transmission Date: 20061013
  Serious: Yes (Hospitalization)
  Sender: FDA-Public Use
  Company Number: US-MERCK-0508USA04884

PATIENT
  Age: 52 Year
  Sex: Female
  Weight: 91 kg

DRUGS (3)
  1. VIOXX [Suspect]
     Indication: PAIN
     Route: 048
     Dates: start: 20010101, end: 20030301
  2. VIOXX [Suspect]
     Indication: INFLAMMATION
     Route: 048
     Dates: start: 20010101, end: 20030301
  3. PREMARIN [Concomitant]
     Route: 065

REACTIONS (7)
  - CARDIAC MURMUR [None]
  - CARDIAC VALVE DISEASE [None]
  - HYPERTENSION [None]
  - OEDEMA PERIPHERAL [None]
  - OVARIAN DISORDER [None]
  - POLYP [None]
  - TENDON DISORDER [None]
